FAERS Safety Report 16361498 (Version 14)
Quarter: 2021Q2

REPORT INFORMATION
  Report Type: Spontaneous
  Country: US (occurrence: US)
  Receive Date: 20190528
  Receipt Date: 20210628
  Transmission Date: 20210716
  Serious: No
  Sender: FDA-Public Use
  Company Number: US-PFIZER INC-2019180508

PATIENT
  Age: 64 Year
  Sex: Female
  Weight: 108 kg

DRUGS (4)
  1. LYRICA [Suspect]
     Active Substance: PREGABALIN
     Indication: NEUROPATHY PERIPHERAL
     Dosage: 200 MG, 1X/DAY
     Route: 048
     Dates: start: 2016
  2. LYRICA [Suspect]
     Active Substance: PREGABALIN
     Indication: NEUROPATHY PERIPHERAL
     Dosage: 600 MG, 1X/DAY (TAKE 3 CAPSULES BY MOUTH AT BEDTIME, 600 MG TOTAL)
     Route: 048
     Dates: start: 20190524
  3. LYRICA [Suspect]
     Active Substance: PREGABALIN
     Dosage: 600 MG, 1X/DAY (TAKE 3 CAPSULES BY MOUTH AT BEDTIME, 600 MG TOTAL)
     Route: 048
     Dates: start: 20201028
  4. LYRICA [Suspect]
     Active Substance: PREGABALIN
     Indication: DIABETES MELLITUS
     Dosage: 600 MG, 1X/DAY (TAKE 3 CAPSULES BY MOUTH AT BEDTIME, 600 MG TOTAL)
     Route: 048
     Dates: start: 20190426, end: 2019

REACTIONS (2)
  - Pain in extremity [Unknown]
  - Carpal tunnel syndrome [Not Recovered/Not Resolved]

NARRATIVE: CASE EVENT DATE: 2018
